FAERS Safety Report 7342746-1 (Version None)
Quarter: 2011Q1

REPORT INFORMATION
  Report Type: 
  Country: None (occurrence: None)
  Receive Date: 20110310
  Receipt Date: 20110301
  Transmission Date: 20110831
  Serious: Yes (Hospitalization)
  Sender: FDA-Public Use
  Company Number: US-SANOFI-AVENTIS-2011SA004790

PATIENT
  Age: 77 Year
  Sex: Male
  Weight: 85 kg

DRUGS (23)
  1. MESALAMINE [Concomitant]
     Dates: start: 20110112
  2. ZOCOR [Concomitant]
     Dates: start: 20110112
  3. LOVENOX [Suspect]
     Route: 058
     Dates: start: 20110114
  4. TAMSULOSIN [Concomitant]
     Dates: start: 20110112
  5. LASIX [Concomitant]
     Dates: start: 20110114
  6. FOSAMAX [Concomitant]
     Dates: start: 20110112
  7. ZOFRAN [Concomitant]
     Dosage: 4MG Q6H PRN
     Route: 051
     Dates: start: 20110112
  8. TYLENOL [Concomitant]
     Dosage: 650MG Q6H PRN
     Dates: start: 20110112
  9. LOVENOX [Suspect]
     Route: 058
     Dates: start: 20110114
  10. ASPIRIN [Concomitant]
     Dates: start: 20110112
  11. ZOSYN [Concomitant]
     Dates: start: 20110112, end: 20110114
  12. PLAVIX [Concomitant]
     Dates: start: 20110112
  13. DEPAKOTE [Concomitant]
     Dosage: 500MG 2 TABLETS TWICE DAILY
     Dates: start: 20110112
  14. POTASSIUM CHLORIDE [Concomitant]
     Dates: start: 20110112
  15. LOVENOX [Suspect]
     Route: 058
     Dates: start: 20110114
  16. SINEMET [Concomitant]
     Dosage: 50/200MG
     Dates: start: 20110112
  17. COMTAN [Concomitant]
     Dates: start: 20110112
  18. PROTONIX [Concomitant]
     Dates: start: 20110112
  19. LEVAQUIN [Concomitant]
     Route: 051
     Dates: start: 20110112, end: 20110114
  20. PROVENTIL [Concomitant]
     Dosage: QID/Q4H PRN
     Route: 007
     Dates: start: 20110114
  21. LOVENOX [Suspect]
     Route: 058
     Dates: start: 20110114
  22. LOVENOX [Suspect]
     Route: 058
     Dates: start: 20110114
  23. LOVENOX [Suspect]
     Route: 058
     Dates: start: 20110114

REACTIONS (1)
  - HYPOGLYCAEMIA [None]
